FAERS Safety Report 23438714 (Version 1)
Quarter: 2024Q1

REPORT INFORMATION
  Report Type: Spontaneous
  Country: US (occurrence: US)
  Receive Date: 20240124
  Receipt Date: 20240124
  Transmission Date: 20240410
  Serious: No
  Sender: FDA-Public Use
  Company Number: US-SA-SAC20240119001200

PATIENT
  Age: 9 Year
  Sex: Male

DRUGS (5)
  1. DUPIXENT [Suspect]
     Active Substance: DUPILUMAB
     Indication: Dermatitis atopic
     Dosage: 300 MG, QOW
     Route: 058
     Dates: start: 202108
  2. AMOXICILLIN [Concomitant]
     Active Substance: AMOXICILLIN
     Indication: Sinusitis
  3. BENADRYL ALLERGY [Concomitant]
     Active Substance: DIPHENHYDRAMINE HYDROCHLORIDE
  4. MOMETASONE FUROATE [Concomitant]
     Active Substance: MOMETASONE FUROATE
  5. HYDROXYZINE HYDROCHLORIDE [Concomitant]
     Active Substance: HYDROXYZINE HYDROCHLORIDE

REACTIONS (6)
  - Rhinorrhoea [Recovered/Resolved]
  - Nasal congestion [Recovered/Resolved]
  - Sinus pain [Recovered/Resolved]
  - Headache [Recovered/Resolved]
  - Nasopharyngitis [Recovered/Resolved]
  - Sinusitis [Recovered/Resolved]
